FAERS Safety Report 8155171-0 (Version None)
Quarter: 2012Q1

REPORT INFORMATION
  Report Type: 
  Country: None (occurrence: None)
  Receive Date: 20120221
  Receipt Date: 20120213
  Transmission Date: 20120608
  Serious: Yes (Other)
  Sender: FDA-Public Use
  Company Number: US-ASTRAZENECA-2012SE10159

PATIENT
  Age: 58 Year
  Sex: Male

DRUGS (21)
  1. CARDURA [Concomitant]
     Route: 048
  2. LOPRESSOR [Concomitant]
     Route: 048
  3. NITROSTAT [Concomitant]
     Dosage: PLACE A TAB UNDER TONGUE EVERY 5 MIN AS NEEDED.ADMINISTER EVERY 5 MIN FOR MAX OF 3 DOSES IN 15 MIN
     Route: 060
  4. LYRICA [Concomitant]
     Indication: DIABETIC NEUROPATHY
     Dosage: MAX 600 MG /DAY
     Route: 048
  5. CATAPRES [Concomitant]
     Route: 048
  6. FERROUS SULFATE TAB [Concomitant]
     Route: 048
  7. ZOCOR [Concomitant]
     Route: 048
  8. LIRAGLUTIDE [Concomitant]
     Dosage: 0.6MG/0.1 ML, INJECT 1.2 MG UNDER THE SKIN ONCE DAILY
     Route: 058
  9. INSULIN GLARGINE [Concomitant]
     Dosage: 100 UNNIT/ML, INJECT 35 UNITS UNDER THE SKIN
     Route: 058
  10. VITAMIN D [Concomitant]
     Route: 048
  11. HYGROTON [Concomitant]
     Route: 048
  12. PLETAL [Concomitant]
     Route: 048
  13. LISINOPRIL [Suspect]
     Route: 048
  14. NORVASC [Concomitant]
     Indication: HYPERTENSION
     Route: 048
  15. ZANTAC [Concomitant]
     Route: 048
  16. SEROQUEL [Concomitant]
     Route: 048
  17. FISH OIL [Concomitant]
     Route: 048
  18. VITAMIN B-12 [Concomitant]
     Dosage: 1000, DAILY
     Route: 048
  19. ATIVAN [Concomitant]
     Indication: ANXIETY
     Dosage: AS NEEDED
     Route: 048
  20. ZYLOPRIM [Concomitant]
     Route: 048
  21. TRICOR [Concomitant]
     Route: 048

REACTIONS (2)
  - RENAL FAILURE ACUTE [None]
  - DRUG HYPERSENSITIVITY [None]
